FAERS Safety Report 26040699 (Version 1)
Quarter: 2025Q4

REPORT INFORMATION
  Report Type: Spontaneous
  Country: EU (occurrence: EU)
  Receive Date: 20251113
  Receipt Date: 20251113
  Transmission Date: 20260117
  Serious: Yes (Other)
  Sender: AMGEN
  Company Number: None

PATIENT
  Age: 55 Year
  Sex: Male
  Weight: 82 kg

DRUGS (5)
  1. VECTIBIX [Suspect]
     Active Substance: PANITUMUMAB
     Indication: Product used for unknown indication
     Dosage: 492 MILLIGRAM
     Route: 040
     Dates: end: 20220816
  2. VECTIBIX [Suspect]
     Active Substance: PANITUMUMAB
     Dosage: 492 MILLIGRAM
     Route: 040
     Dates: end: 20220816
  3. IRINOTECAN [Suspect]
     Active Substance: IRINOTECAN
     Indication: Product used for unknown indication
     Dosage: 371 MILLIGRAM
     Route: 040
     Dates: end: 20220816
  4. FLUOROURACIL [Suspect]
     Active Substance: FLUOROURACIL
     Indication: Colon cancer
     Dosage: 825 MILLIGRAM
     Route: 040
     Dates: start: 20220816, end: 20220817
  5. FLUOROURACIL [Suspect]
     Active Substance: FLUOROURACIL
     Dosage: 2476 MILLIGRAM
     Route: 040
     Dates: start: 20220816, end: 20220817

REACTIONS (1)
  - Neutropenia [Unknown]

NARRATIVE: CASE EVENT DATE: 20220830
